FAERS Safety Report 24079910 (Version 1)
Quarter: 2024Q3

REPORT INFORMATION
  Report Type: Spontaneous
  Country: JP (occurrence: JP)
  Receive Date: 20240711
  Receipt Date: 20240711
  Transmission Date: 20241017
  Serious: Yes (Death)
  Sender: AMERICAN REGENT
  Company Number: JP-AMERICAN REGENT INC-2024002637

PATIENT
  Age: 89 Year
  Sex: Female
  Weight: 21 kg

DRUGS (1)
  1. FERINJECT [Suspect]
     Active Substance: FERRIC CARBOXYMALTOSE
     Indication: Iron deficiency anaemia
     Dosage: 400 MG IN DILUTED 100ML OF 0.9 PERCENT SODIUM CHLORIDE
     Dates: start: 20240618, end: 20240618

REACTIONS (1)
  - Pneumonia aspiration [Fatal]

NARRATIVE: CASE EVENT DATE: 20240625
